FAERS Safety Report 7799536-5 (Version None)
Quarter: 2011Q4

REPORT INFORMATION
  Report Type: 
  Country: None (occurrence: None)
  Receive Date: 20111006
  Receipt Date: 20111006
  Transmission Date: 20120403
  Serious: Yes (Hospitalization, Disabling, Other)
  Sender: FDA-Public Use
  Company Number: None

PATIENT
  Age: 32 Year
  Sex: Female
  Weight: 81.193 kg

DRUGS (1)
  1. MIRENA [Suspect]
     Indication: CONTRACEPTION
     Route: 005

REACTIONS (7)
  - DIZZINESS [None]
  - PALPITATIONS [None]
  - TREMOR [None]
  - SYNCOPE [None]
  - FALL [None]
  - NAUSEA [None]
  - HEADACHE [None]
